FAERS Safety Report 22215305 (Version 1)
Quarter: 2023Q2

REPORT INFORMATION
  Report Type: Spontaneous
  Country: US (occurrence: US)
  Receive Date: 20230415
  Receipt Date: 20230415
  Transmission Date: 20230722
  Serious: No
  Sender: FDA-Public Use
  Company Number: US-JNJFOC-20200211152

PATIENT
  Sex: Male
  Weight: 68.554 kg

DRUGS (1)
  1. IMODIUM MULTI-SYMPTOM RELIEF [Suspect]
     Active Substance: DIMETHICONE\LOPERAMIDE HYDROCHLORIDE
     Indication: Infrequent bowel movements
     Dosage: 6-8 TABLETS A DAY 4X A DAY
     Route: 048
     Dates: end: 20200205

REACTIONS (2)
  - Off label use [Unknown]
  - Incorrect dose administered [Unknown]
